FAERS Safety Report 8505530-9 (Version None)
Quarter: 2012Q2

REPORT INFORMATION
  Report Type: 
  Country: None (occurrence: None)
  Receive Date: 20120405
  Receipt Date: 20091006
  Transmission Date: 20120825
  Serious: Yes (Other)
  Sender: FDA-Public Use
  Company Number: PHEH2009US11654

PATIENT
  Age: 73 Year
  Sex: Male
  Weight: 89.3 kg

DRUGS (15)
  1. CALCIUM CARBONATE [Concomitant]
  2. VITAMIN D [Concomitant]
  3. VITAMIN A [Concomitant]
  4. NITROGLYCERIN ^A.L.^ (GLYCERYL TRINITRATE) [Concomitant]
  5. MOMETASONE FUROATE [Concomitant]
  6. DOXAZOSIN MESYLATE [Concomitant]
  7. MULTIVITAMINS (ASCORBIC ACID, ERGOCALCIFEROL, FOLIC ACID, NICOTINAMIDE [Concomitant]
  8. HYDROXYZINE [Concomitant]
  9. ATENOLOL [Concomitant]
  10. RECLAST [Suspect]
     Indication: OSTEOPOROSIS
     Dosage: 5 MG, ONCE/SINGLE, INTRAVENOUS
     Route: 042
     Dates: start: 20090902, end: 20090902
  11. HYDROCHLOROTHIAZIDE [Concomitant]
  12. SIMVASTATIN [Concomitant]
  13. OMEPRAZOLE [Concomitant]
  14. LOVAZA [Concomitant]
  15. ASPIRIN [Concomitant]

REACTIONS (2)
  - PRURITUS [None]
  - RASH ERYTHEMATOUS [None]
